FAERS Safety Report 7805328-0 (Version None)
Quarter: 2011Q4

REPORT INFORMATION
  Report Type: 
  Country: None (occurrence: None)
  Receive Date: 20111010
  Receipt Date: 20110927
  Transmission Date: 20120403
  Serious: Yes (Hospitalization)
  Sender: FDA-Public Use
  Company Number: FR-MYLANLABS-2011S1020291

PATIENT
  Age: 10 Year
  Sex: Male
  Weight: 35 kg

DRUGS (1)
  1. TOPIRAMATE [Suspect]
     Indication: POISONING DELIBERATE
     Dosage: 700MG
     Route: 065

REACTIONS (9)
  - ENCEPHALOPATHY [None]
  - SOMNOLENCE [None]
  - HALLUCINATION, VISUAL [None]
  - LOGORRHOEA [None]
  - AGITATION [None]
  - HYPOTONIA [None]
  - METABOLIC ACIDOSIS [None]
  - OVERDOSE [None]
  - CONFUSIONAL STATE [None]
